FAERS Safety Report 24463790 (Version 1)
Quarter: 2024Q4

REPORT INFORMATION
  Report Type: Report from Study
  Country: US (occurrence: US)
  Receive Date: 20241018
  Receipt Date: 20241018
  Transmission Date: 20250115
  Serious: No
  Sender: ROCHE
  Company Number: US-ROCHE-3459167

PATIENT
  Age: 80 Year
  Sex: Female
  Weight: 58.0 kg

DRUGS (2)
  1. XOLAIR [Suspect]
     Active Substance: OMALIZUMAB
     Indication: Asthma
     Dosage: LAST DATE OF INJECTION: 31/OCT/2023, 30 DAYS SUPPLY, REFILLS 11 TIMES, 6 VIALS, DATE OF SERVICE: 28/
     Route: 058
     Dates: start: 201805
  2. XOLAIR [Suspect]
     Active Substance: OMALIZUMAB

REACTIONS (2)
  - Off label use [Unknown]
  - Seasonal allergy [Recovered/Resolved]

NARRATIVE: CASE EVENT DATE: 20231001
